FAERS Safety Report 6742433-4 (Version None)
Quarter: 2010Q2

REPORT INFORMATION
  Report Type: 
  Country: None (occurrence: None)
  Receive Date: 20100526
  Receipt Date: 20100517
  Transmission Date: 20101027
  Serious: Yes (Hospitalization)
  Sender: FDA-Public Use
  Company Number: US-ASTRAZENECA-2009SE29441

PATIENT
  Age: 73 Year
  Sex: Male
  Weight: 81.6 kg

DRUGS (11)
  1. CRESTOR [Suspect]
     Route: 048
  2. ACTOS [Concomitant]
     Route: 048
  3. GLUCOPHAGE [Concomitant]
     Route: 048
  4. TENORMIN [Concomitant]
     Route: 048
  5. BENICAR HCT [Concomitant]
     Dosage: 40/12.5 MG, TAKE ONE TABLET BY MOUTH DAILY EARLY MORNING
     Route: 048
  6. ASPIR [Concomitant]
     Route: 048
  7. MAGNESIUM [Concomitant]
     Route: 048
  8. CALCARB 600 WITH VITAMIN D [Concomitant]
     Dosage: 600/400 MG, ONE TABLET BY MOUTH DAILY
     Route: 048
  9. B 12 DOTS [Concomitant]
     Route: 048
  10. ADVIL LIQUI-GELS [Concomitant]
     Indication: PAIN
     Dosage: 200 MG BY MOUTH EVERY 6 HOURS AS NEEDED
     Route: 048
  11. FOSAMAX [Concomitant]
     Route: 048

REACTIONS (4)
  - CARDIAC FAILURE CONGESTIVE [None]
  - LEFT VENTRICULAR DYSFUNCTION [None]
  - MITRAL VALVE INCOMPETENCE [None]
  - MYOCARDIAL INFARCTION [None]
